FAERS Safety Report 6814345-9 (Version None)
Quarter: 2010Q3

REPORT INFORMATION
  Report Type: 
  Country: None (occurrence: None)
  Receive Date: 20100702
  Receipt Date: 20100623
  Transmission Date: 20110219
  Serious: Yes (Other)
  Sender: FDA-Public Use
  Company Number: US-JNJFOC-20100406870

PATIENT
  Sex: Female

DRUGS (3)
  1. NUCYNTA [Suspect]
     Indication: PAIN
     Route: 065
  2. ADDERALL 10 [Concomitant]
     Route: 065
  3. UNKNOWN MULTIPLE MEDICATION [Concomitant]

REACTIONS (1)
  - DYSTONIA [None]
